FAERS Safety Report 12155544 (Version 3)
Quarter: 2016Q2

REPORT INFORMATION
  Report Type: Spontaneous
  Country: US (occurrence: US)
  Receive Date: 20160307
  Receipt Date: 20160429
  Transmission Date: 20160815
  Serious: No
  Sender: FDA-Public Use
  Company Number: US-ACTELION PHARMACEUTICALS US, INC.-A-US2016-132458

PATIENT
  Age: 81 Year
  Sex: Male

DRUGS (1)
  1. OPSUMIT [Suspect]
     Active Substance: MACITENTAN
     Indication: PULMONARY ARTERIAL HYPERTENSION
     Dosage: 10 MG, QD
     Route: 048
     Dates: start: 20160219

REACTIONS (9)
  - Gait disturbance [Unknown]
  - Swelling [Unknown]
  - Abdominal pain upper [Unknown]
  - Constipation [Unknown]
  - Abdominal distension [Unknown]
  - Pulmonary oedema [Unknown]
  - Malaise [Unknown]
  - Generalised oedema [Unknown]
  - Thirst [Not Recovered/Not Resolved]
